FAERS Safety Report 26121068 (Version 1)
Quarter: 2025Q4

REPORT INFORMATION
  Report Type: Spontaneous
  Country: US (occurrence: None)
  Receive Date: 20251203
  Receipt Date: 20251203
  Transmission Date: 20260118
  Serious: Yes (Hospitalization)
  Sender: FDA-CTU
  Company Number: None

PATIENT
  Age: 29 Month
  Sex: Female

DRUGS (1)
  1. VIGABATRIN [Suspect]
     Active Substance: VIGABATRIN
     Dosage: FREQUENCY : AS DIRECTED;?FREQ: MIX ONE PACKET WITH 10 ML WATER, AND GIVE 10 ML ORALLY TWICE DAILY (AM AND PM)?
     Route: 048
     Dates: start: 20250915

REACTIONS (1)
  - Gastrointestinal tube insertion [None]

NARRATIVE: CASE EVENT DATE: 20251012
